FAERS Safety Report 6587804-4 (Version None)
Quarter: 2010Q1

REPORT INFORMATION
  Report Type: 
  Country: None (occurrence: None)
  Receive Date: 20100218
  Receipt Date: 20100208
  Transmission Date: 20100710
  Serious: Yes (Hospitalization, Disabling)
  Sender: FDA-Public Use
  Company Number: PHHY2010US07159

PATIENT
  Sex: Male

DRUGS (14)
  1. ZOMETA [Suspect]
     Indication: MULTIPLE MYELOMA
     Dosage: 4 MG, QMO
     Route: 042
     Dates: start: 20080307, end: 20090722
  2. REVLIMID [Suspect]
     Indication: MULTIPLE MYELOMA
     Dosage: 25 MG, QD
     Route: 048
     Dates: start: 20081101
  3. REVLIMID [Suspect]
     Dosage: 10 MG DAILY
     Dates: start: 20090101, end: 20091101
  4. HYDROCODONE BITARTRATE [Concomitant]
     Indication: PAIN IN JAW
     Route: 048
  5. HYDROCODONE BITARTRATE [Concomitant]
     Indication: GINGIVAL EROSION
  6. COUMADIN [Concomitant]
     Dosage: 5 MG, BID
     Route: 048
  7. RESTORIL [Concomitant]
     Dosage: 30 UNK
     Route: 048
  8. MULTI-VITAMINS [Concomitant]
  9. PROZAC [Concomitant]
     Dosage: 20 MG, UNK
     Route: 048
  10. ALPRAZOLAM [Concomitant]
  11. OXYCODONE HCL [Concomitant]
     Indication: BACK PAIN
     Dosage: 5 MG, PRN
  12. DEXAMETHASONE [Concomitant]
     Dosage: 0.5 MG,10 TABLETS EVERY WEEK
  13. OXYCET [Concomitant]
     Indication: PAIN
     Dosage: UNK
     Dates: start: 20090801
  14. ANTIBIOTICS [Concomitant]
     Indication: OSTEONECROSIS

REACTIONS (8)
  - BONE DISORDER [None]
  - DYSPHAGIA [None]
  - FATIGUE [None]
  - GINGIVAL EROSION [None]
  - INSOMNIA [None]
  - OSTEONECROSIS [None]
  - PAIN IN JAW [None]
  - SWELLING [None]
